FAERS Safety Report 7824369-0 (Version None)
Quarter: 2011Q4

REPORT INFORMATION
  Report Type: 
  Country: None (occurrence: None)
  Receive Date: 20111019
  Receipt Date: 20111014
  Transmission Date: 20120403
  Serious: Yes (Death)
  Sender: FDA-Public Use
  Company Number: US-ACTELION-A-NJ2011-54950

PATIENT

DRUGS (7)
  1. BENADRYL [Concomitant]
  2. ZOLOFT [Concomitant]
  3. TRACLEER [Suspect]
     Indication: PULMONARY ARTERIAL HYPERTENSION
     Dosage: 62.5 MG, BID
     Route: 048
     Dates: start: 20080103, end: 20110922
  4. PROAMATINE [Concomitant]
  5. HUMALIN [Concomitant]
  6. COUMADIN [Concomitant]
  7. MIRALAX [Concomitant]

REACTIONS (7)
  - PULMONARY HYPERTENSION [None]
  - RENAL FAILURE CHRONIC [None]
  - SHOCK [None]
  - COAGULOPATHY [None]
  - AORTIC STENOSIS [None]
  - ANAEMIA [None]
  - HAEMORRHAGE [None]
